FAERS Safety Report 5157543-5 (Version None)
Quarter: 2006Q4

REPORT INFORMATION
  Report Type: 
  Country: None (occurrence: None)
  Receive Date: 20061127
  Receipt Date: 20061120
  Transmission Date: 20070319
  Serious: Yes (Hospitalization)
  Sender: FDA-Public Use
  Company Number: FR-GLAXOSMITHKLINE-B0447652A

PATIENT
  Age: 50 Year
  Sex: Male
  Weight: 95 kg

DRUGS (5)
  1. CLAMOXYL [Suspect]
     Indication: PROPHYLAXIS
     Dosage: 500MG FOUR TIMES PER DAY
     Route: 048
  2. NEXIUM [Suspect]
     Indication: PROPHYLAXIS
     Dosage: 20MG TWICE PER DAY
     Route: 048
  3. SOLUPRED [Suspect]
     Indication: PROPHYLAXIS
     Dosage: 15MG PER DAY
     Route: 048
  4. TRIFLUCAN [Suspect]
     Indication: GASTROENTERITIS
     Dosage: 50MG PER DAY
     Route: 048
     Dates: start: 20061016, end: 20061019
  5. COUMADIN [Suspect]
     Dosage: 2MG FOUR TIMES PER DAY
     Route: 048
     Dates: start: 20010901, end: 20061019

REACTIONS (3)
  - COAGULATION TIME PROLONGED [None]
  - DRUG INTERACTION [None]
  - INTERNATIONAL NORMALISED RATIO ABNORMAL [None]
